FAERS Safety Report 5267636-X (Version None)
Quarter: 2007Q1

REPORT INFORMATION
  Report Type: 
  Country: None (occurrence: None)
  Receive Date: 20070316
  Receipt Date: 20070315
  Transmission Date: 20070707
  Serious: Yes (Hospitalization)
  Sender: FDA-Public Use
  Company Number: CA-BRISTOL-MYERS SQUIBB COMPANY-13637459

PATIENT
  Age: 65 Year
  Sex: Female
  Weight: 61 kg

DRUGS (5)
  1. LOMUSTINE [Suspect]
     Indication: GLIOBLASTOMA MULTIFORME
     Route: 048
     Dates: start: 20061128
  2. DEXAMETHASONE [Concomitant]
     Indication: BRAIN OEDEMA
     Dates: start: 20061027
  3. RANITIDINE [Concomitant]
     Indication: DYSPEPSIA
  4. PROCHLORPERAZINE [Concomitant]
     Indication: VOMITING
     Dates: start: 20061128
  5. FUROSEMIDE [Concomitant]
     Indication: DIURETIC THERAPY
     Dates: start: 20061219, end: 20070101

REACTIONS (5)
  - COUGH [None]
  - DYSPNOEA [None]
  - FEBRILE NEUTROPENIA [None]
  - HYPOXIA [None]
  - PNEUMONIA [None]
